FAERS Safety Report 9786603 (Version 1)
Quarter: 2013Q4

REPORT INFORMATION
  Report Type: Spontaneous
  Country: JP (occurrence: JP)
  Receive Date: 20131227
  Receipt Date: 20131227
  Transmission Date: 20140711
  Serious: Yes (Death)
  Sender: FDA-Public Use
  Company Number: PHHY2013JP149813

PATIENT
  Sex: Female

DRUGS (12)
  1. MIRTAZAPINE [Suspect]
  2. SERTRALINE [Suspect]
  3. ZOLPIDEM [Suspect]
  4. CHLORPROMAZINE [Suspect]
  5. AMOXAPINE [Suspect]
  6. ZOPICLONE [Concomitant]
  7. ALPRAZOLAM [Concomitant]
  8. LORAZEPAM [Concomitant]
  9. CLOTIAZEPAM [Concomitant]
  10. FLUNITRAZEPAM [Concomitant]
  11. BROTIZOLAM [Concomitant]
  12. TRIAZOLAM [Concomitant]

REACTIONS (1)
  - Toxicity to various agents [Fatal]
